FAERS Safety Report 8566490-8 (Version None)
Quarter: 2012Q3

REPORT INFORMATION
  Report Type: 
  Country: None (occurrence: None)
  Receive Date: 20120803
  Receipt Date: 20120103
  Transmission Date: 20120928
  Serious: No
  Sender: FDA-Public Use
  Company Number: US-ABBOTT-12P-163-0888661-00

PATIENT
  Sex: Male
  Weight: 77.18 kg

DRUGS (1)
  1. NIASPAN [Suspect]
     Indication: BLOOD CHOLESTEROL INCREASED
     Dosage: 1000 MG DAILY
     Dates: start: 20111201

REACTIONS (2)
  - DISCOMFORT [None]
  - FLUSHING [None]
